FAERS Safety Report 25623440 (Version 1)
Quarter: 2025Q3

REPORT INFORMATION
  Report Type: Spontaneous
  Country: US (occurrence: US)
  Receive Date: 20250730
  Receipt Date: 20250730
  Transmission Date: 20251020
  Serious: No
  Sender: AMGEN
  Company Number: US-AMGEN-USASP2025148676

PATIENT
  Age: 33 Year
  Sex: Female

DRUGS (1)
  1. UPLIZNA [Suspect]
     Active Substance: INEBILIZUMAB-CDON
     Indication: Product used for unknown indication
     Route: 040
     Dates: start: 20250724

REACTIONS (3)
  - Dyspnoea [Recovering/Resolving]
  - Vomiting [Recovering/Resolving]
  - Medication error [Unknown]

NARRATIVE: CASE EVENT DATE: 20250724
